FAERS Safety Report 6214056-7 (Version None)
Quarter: 2009Q2

REPORT INFORMATION
  Report Type: 
  Country: None (occurrence: None)
  Receive Date: 20090601
  Receipt Date: 20090601
  Transmission Date: 20091009
  Serious: Yes (Other)
  Sender: FDA-Public Use
  Company Number: None

PATIENT
  Sex: Female

DRUGS (5)
  1. TASIGNA [Suspect]
     Indication: GASTROINTESTINAL CARCINOMA
     Dosage: 200MG 2 DAILY PO PT CONTINUING ON 2 DAILY
     Route: 048
     Dates: start: 20090508, end: 20090529
  2. OXYCODONE [Concomitant]
  3. PREVACID [Concomitant]
  4. DARVOCET [Concomitant]
  5. VICOPROFEN [Concomitant]

REACTIONS (2)
  - FATIGUE [None]
  - MUSCLE SPASMS [None]
